FAERS Safety Report 6144150-0 (Version None)
Quarter: 2009Q2

REPORT INFORMATION
  Report Type: 
  Country: None (occurrence: None)
  Receive Date: 20090406
  Receipt Date: 20090327
  Transmission Date: 20091009
  Serious: Yes (Life-Threatening)
  Sender: FDA-Public Use
  Company Number: JP-ABBOTT-08P-087-0459709-00

PATIENT
  Sex: Male

DRUGS (10)
  1. LEUPLIN SR FOR INJECTION KIT [Suspect]
     Indication: PROSTATE CANCER
     Route: 058
     Dates: start: 20060221, end: 20080610
  2. LEUPLIN SR FOR INJECTION KIT [Suspect]
     Dates: start: 20051227, end: 20060221
  3. CASODEX [Concomitant]
     Indication: PROSTATE CANCER
     Route: 048
     Dates: start: 20060613, end: 20080311
  4. DIOVAN [Concomitant]
     Indication: HYPERTENSION
     Route: 048
     Dates: start: 19991007, end: 20080618
  5. AMLODIPINE [Concomitant]
     Indication: HYPERTENSION
     Route: 048
     Dates: start: 19991007, end: 20080618
  6. PROTECADIN [Concomitant]
     Indication: GASTRIC ULCER
     Route: 048
     Dates: start: 20011006, end: 20080528
  7. ZYLORIC [Concomitant]
     Indication: HYPERURICAEMIA
     Route: 048
     Dates: start: 20020905, end: 20080318
  8. URALYT [Concomitant]
     Indication: HYPERURICAEMIA
     Route: 048
     Dates: start: 20020905, end: 20080618
  9. NAFTOPIDIL [Concomitant]
     Indication: DYSURIA
     Route: 048
     Dates: start: 20020905, end: 20060808
  10. 1% LIDOCAINE FOR ANESTHESIA [Concomitant]
     Indication: ANAESTHESIA
     Dosage: 1%
     Dates: start: 20080621, end: 20080621

REACTIONS (2)
  - PANCYTOPENIA [None]
  - UNEVALUABLE EVENT [None]
